FAERS Safety Report 14992028 (Version 1)
Quarter: 2018Q2

REPORT INFORMATION
  Report Type: Spontaneous
  Country: US (occurrence: US)
  Receive Date: 20180608
  Receipt Date: 20180608
  Transmission Date: 20180711
  Serious: No
  Sender: FDA-Public Use
  Company Number: US-CELGENEUS-USA-20180510654

PATIENT
  Age: 74 Year
  Sex: Male

DRUGS (2)
  1. REVLIMID [Suspect]
     Active Substance: LENALIDOMIDE
     Dosage: 15 MILLIGRAM
     Route: 048
     Dates: start: 201805, end: 20180523
  2. REVLIMID [Suspect]
     Active Substance: LENALIDOMIDE
     Indication: MYCOSIS FUNGOIDES
     Dosage: 5 MILLIGRAM
     Route: 048
     Dates: start: 201805

REACTIONS (5)
  - Peripheral coldness [Unknown]
  - Peripheral swelling [Unknown]
  - Pyrexia [Unknown]
  - Pulse absent [Unknown]
  - Cyanosis [Unknown]

NARRATIVE: CASE EVENT DATE: 2018
